FAERS Safety Report 20688714 (Version 1)
Quarter: 2022Q2

REPORT INFORMATION
  Report Type: Other
  Country: CZ (occurrence: CZ)
  Receive Date: 20220408
  Receipt Date: 20220408
  Transmission Date: 20220721
  Serious: Yes (Other)
  Sender: FDA-Public Use
  Company Number: CZ-ROCHE-3042184

PATIENT
  Sex: Male

DRUGS (42)
  1. IBUPROFEN [Suspect]
     Active Substance: IBUPROFEN
     Indication: Prophylaxis against transplant rejection
     Dosage: UNK, 1-2 X DAILY (FROM 10 YEARS)
     Route: 065
  2. IBUPROFEN [Suspect]
     Active Substance: IBUPROFEN
     Indication: Lymphoproliferative disorder
  3. IBUPROFEN [Suspect]
     Active Substance: IBUPROFEN
     Indication: Autoimmune haemolytic anaemia
  4. IBUPROFEN [Suspect]
     Active Substance: IBUPROFEN
     Indication: Autoinflammatory disease
  5. CYCLOSPORINE [Suspect]
     Active Substance: CYCLOSPORINE
     Indication: Prophylaxis against transplant rejection
     Dosage: UNK
     Route: 065
  6. CYCLOSPORINE [Suspect]
     Active Substance: CYCLOSPORINE
     Indication: Lymphoproliferative disorder
  7. CYCLOSPORINE [Suspect]
     Active Substance: CYCLOSPORINE
     Indication: Autoimmune haemolytic anaemia
  8. CYCLOSPORINE [Suspect]
     Active Substance: CYCLOSPORINE
     Indication: Autoinflammatory disease
  9. AZATHIOPRINE [Suspect]
     Active Substance: AZATHIOPRINE
     Indication: Autoinflammatory disease
     Dosage: UNK
     Route: 065
  10. AZATHIOPRINE [Suspect]
     Active Substance: AZATHIOPRINE
     Indication: Autoimmune haemolytic anaemia
  11. AZATHIOPRINE [Suspect]
     Active Substance: AZATHIOPRINE
     Indication: Prophylaxis against transplant rejection
  12. AZATHIOPRINE [Suspect]
     Active Substance: AZATHIOPRINE
     Indication: Lymphoproliferative disorder
  13. DOMPERIDONE [Suspect]
     Active Substance: DOMPERIDONE
     Indication: Lymphoproliferative disorder
     Dosage: UNK, 0.3-2.5 MG/KG/DAY
     Route: 065
  14. DOMPERIDONE [Suspect]
     Active Substance: DOMPERIDONE
     Indication: Prophylaxis against transplant rejection
  15. DOMPERIDONE [Suspect]
     Active Substance: DOMPERIDONE
     Indication: Autoinflammatory disease
  16. DOMPERIDONE [Suspect]
     Active Substance: DOMPERIDONE
     Indication: Autoimmune haemolytic anaemia
  17. PANTOPRAZOLE [Suspect]
     Active Substance: PANTOPRAZOLE
     Indication: Prophylaxis against transplant rejection
     Dosage: UNK (0.3-2.5 MG/KG/DAY)
     Route: 065
  18. PANTOPRAZOLE [Suspect]
     Active Substance: PANTOPRAZOLE
     Indication: Lymphoproliferative disorder
  19. PANTOPRAZOLE [Suspect]
     Active Substance: PANTOPRAZOLE
     Indication: Autoimmune haemolytic anaemia
  20. PANTOPRAZOLE [Suspect]
     Active Substance: PANTOPRAZOLE
     Indication: Autoinflammatory disease
  21. METHYLPREDNISOLONE [Suspect]
     Active Substance: METHYLPREDNISOLONE
     Indication: Lymphoproliferative disorder
     Dosage: UNK
     Route: 065
  22. METHYLPREDNISOLONE [Suspect]
     Active Substance: METHYLPREDNISOLONE
     Indication: Autoinflammatory disease
  23. METHYLPREDNISOLONE [Suspect]
     Active Substance: METHYLPREDNISOLONE
     Indication: Autoimmune haemolytic anaemia
  24. METHYLPREDNISOLONE [Suspect]
     Active Substance: METHYLPREDNISOLONE
     Indication: Prophylaxis against transplant rejection
  25. SIROLIMUS [Suspect]
     Active Substance: SIROLIMUS
     Indication: Autoinflammatory disease
     Dosage: UNK
     Route: 065
  26. SIROLIMUS [Suspect]
     Active Substance: SIROLIMUS
     Indication: Lymphoproliferative disorder
  27. SIROLIMUS [Suspect]
     Active Substance: SIROLIMUS
     Indication: Prophylaxis against transplant rejection
  28. SIROLIMUS [Suspect]
     Active Substance: SIROLIMUS
     Indication: Autoimmune haemolytic anaemia
  29. METHOTREXATE [Suspect]
     Active Substance: METHOTREXATE
     Indication: Autoinflammatory disease
     Dosage: 15 MILLIGRAM PER WEEK FROM 10 YEARS
     Route: 058
  30. METHOTREXATE [Suspect]
     Active Substance: METHOTREXATE
     Indication: Prophylaxis against transplant rejection
  31. METHOTREXATE [Suspect]
     Active Substance: METHOTREXATE
     Indication: Lymphoproliferative disorder
  32. METHOTREXATE [Suspect]
     Active Substance: METHOTREXATE
     Indication: Autoimmune haemolytic anaemia
  33. ANAKINRA [Suspect]
     Active Substance: ANAKINRA
     Indication: Prophylaxis against transplant rejection
     Dosage: UNK, FROM 9 YEARS
     Route: 065
  34. ANAKINRA [Suspect]
     Active Substance: ANAKINRA
     Indication: Autoinflammatory disease
  35. ANAKINRA [Suspect]
     Active Substance: ANAKINRA
     Indication: Lymphoproliferative disorder
  36. ANAKINRA [Suspect]
     Active Substance: ANAKINRA
     Indication: Autoimmune haemolytic anaemia
  37. RITUXIMAB [Suspect]
     Active Substance: RITUXIMAB
     Indication: Prophylaxis against transplant rejection
     Dosage: 375 MILLIGRAM/SQ. METER, 4 TIMES; INFUSION SOLUTION
     Route: 042
  38. RITUXIMAB [Suspect]
     Active Substance: RITUXIMAB
     Indication: Lymphoproliferative disorder
  39. RITUXIMAB [Suspect]
     Active Substance: RITUXIMAB
     Indication: Autoinflammatory disease
  40. RITUXIMAB [Suspect]
     Active Substance: RITUXIMAB
     Indication: Autoimmune haemolytic anaemia
  41. ZOLEDRONIC ACID [Concomitant]
     Active Substance: ZOLEDRONIC ACID
     Indication: Product used for unknown indication
     Dosage: UNK
     Route: 065
  42. CALCIUM [Concomitant]
     Active Substance: CALCIUM
     Indication: Product used for unknown indication
     Dosage: UNK
     Route: 065

REACTIONS (7)
  - Gastroenteritis salmonella [Unknown]
  - Cytomegalovirus infection reactivation [Unknown]
  - Upper respiratory tract infection [Unknown]
  - Epstein-Barr virus infection [Unknown]
  - Herpes zoster [Unknown]
  - Adenovirus infection [Unknown]
  - Off label use [Unknown]
